FAERS Safety Report 16983378 (Version 1)
Quarter: 2019Q4

REPORT INFORMATION
  Report Type: Other
  Country: ES (occurrence: ES)
  Receive Date: 20191101
  Receipt Date: 20191101
  Transmission Date: 20200122
  Serious: Yes (Hospitalization)
  Sender: FDA-Public Use
  Company Number: ES-GRANULES INDIA LIMITED-2076328

PATIENT
  Age: 82 Year
  Sex: Female
  Weight: 80 kg

DRUGS (2)
  1. MORPHINE [Interacting]
     Active Substance: MORPHINE
  2. GABAPENTIN CAPSULES USP, 100 MG, 300 MG, 400 MG [Suspect]
     Active Substance: GABAPENTIN
     Indication: PAIN

REACTIONS (9)
  - Renal impairment [Recovering/Resolving]
  - Condition aggravated [Recovering/Resolving]
  - Somnolence [Recovering/Resolving]
  - Hallucination, visual [Recovered/Resolved]
  - Off label use [Unknown]
  - Drug interaction [Recovered/Resolved]
  - Myoclonus [Recovering/Resolving]
  - Confusional state [Recovering/Resolving]
  - Psychotic disorder [Recovered/Resolved]
